FAERS Safety Report 10504172 (Version 1)
Quarter: 2014Q4

REPORT INFORMATION
  Report Type: Spontaneous
  Country: US (occurrence: US)
  Receive Date: 20141008
  Receipt Date: 20141008
  Transmission Date: 20150528
  Serious: No
  Sender: FDA-Public Use
  Company Number: US-BEH-2014041122

PATIENT
  Age: 19 Year
  Sex: Male
  Weight: 67 kg

DRUGS (12)
  1. DIPHENHYDRAMINE [Concomitant]
     Active Substance: DIPHENHYDRAMINE
  2. IRON [Concomitant]
     Active Substance: IRON
  3. ACETAMINOPHEN. [Concomitant]
     Active Substance: ACETAMINOPHEN
  4. PRIVIGEN [Suspect]
     Active Substance: HUMAN IMMUNOGLOBULIN G
     Indication: IMMUNODEFICIENCY COMMON VARIABLE
     Dosage: 5 GM VIAL;START 100ML/HR FOR 15 MIN,THEN 200ML/HR FOR 15 MIN.THEN 400 ML/HR FOR 15 MIN,THEN 600 ML/H
     Route: 042
     Dates: start: 20140306, end: 20140306
  5. SODIUM CHLORIDE. [Concomitant]
     Active Substance: SODIUM CHLORIDE
  6. CENTRUM MULTIVITAMIN [Concomitant]
  7. VITAMIN A [Concomitant]
     Active Substance: VITAMIN A
  8. CYCLOSPORINE. [Concomitant]
     Active Substance: CYCLOSPORINE
  9. VITAMIN C [Concomitant]
     Active Substance: ASCORBIC ACID
  10. EPIPEN [Concomitant]
     Active Substance: EPINEPHRINE
  11. VITAMIN D [Concomitant]
     Active Substance: CHOLECALCIFEROL
  12. KLOR CON [Concomitant]

REACTIONS (1)
  - Chest pain [Recovering/Resolving]

NARRATIVE: CASE EVENT DATE: 20140307
